FAERS Safety Report 11448987 (Version 7)
Quarter: 2017Q4

REPORT INFORMATION
  Report Type: Spontaneous
  Country: US (occurrence: US)
  Receive Date: 20150902
  Receipt Date: 20171201
  Transmission Date: 20180320
  Serious: No
  Sender: FDA-Public Use
  Company Number: US-PFIZER INC-2015290089

PATIENT
  Age: 73 Year
  Sex: Male
  Weight: 86.17 kg

DRUGS (11)
  1. VIAGRA [Suspect]
     Active Substance: SILDENAFIL CITRATE
     Dosage: UNK UNK, DAILY, (.5-1 TABLET, ORAL, DAILY)
     Route: 048
  2. VIAGRA [Suspect]
     Active Substance: SILDENAFIL CITRATE
     Dosage: UNK , AS NEEDED [.5 - 1 TABLET PRN]
     Route: 048
  3. LEVODOPA-CARBIDOPA [Concomitant]
     Active Substance: CARBIDOPA\LEVODOPA
     Indication: PARKINSON^S DISEASE
     Dosage: 4 MG, 4X/DAY
  4. LEVODOPA-CARBIDOPA [Concomitant]
     Active Substance: CARBIDOPA\LEVODOPA
     Dosage: UNK (ONE AND HALF TABLET FOUR TIMES A DAY AND ONE AT BED TIME)
  5. ROPINIROLE. [Concomitant]
     Active Substance: ROPINIROLE
     Indication: PARKINSON^S DISEASE
     Dosage: 4 MG, 4X/DAY
  6. VIAGRA [Suspect]
     Active Substance: SILDENAFIL CITRATE
     Dosage: 100 MG, AS NEEDED
     Route: 048
  7. BUPROPION. [Concomitant]
     Active Substance: BUPROPION
     Indication: PARKINSON^S DISEASE
  8. VIAGRA [Suspect]
     Active Substance: SILDENAFIL CITRATE
     Indication: ERECTILE DYSFUNCTION
     Dosage: 100 MG, ONCE OR TWICE A WEEK AS NEEDED
  9. BUPROPION. [Concomitant]
     Active Substance: BUPROPION
     Indication: ANTIDEPRESSANT THERAPY
     Dosage: 150 MG, UNK
  10. LEVODOPA-CARBIDOPA [Concomitant]
     Active Substance: CARBIDOPA\LEVODOPA
     Dosage: 25-100 MG 4.5X4 TABLET DAILY 1 WHOLE ONCE DAILY)
  11. VIAGRA [Suspect]
     Active Substance: SILDENAFIL CITRATE
     Indication: PARKINSON^S DISEASE
     Dosage: 50 MG, (OCCASIONALLY BROKE 100MG IN H ALF)

REACTIONS (2)
  - Drug ineffective [Unknown]
  - Drug effect delayed [Not Recovered/Not Resolved]
